FAERS Safety Report 9008916 (Version 2)
Quarter: 2013Q1

REPORT INFORMATION
  Report Type: Report from Study
  Country: DE (occurrence: DE)
  Receive Date: 20130111
  Receipt Date: 20130312
  Transmission Date: 20140127
  Serious: Yes (Other)
  Sender: FDA-Public Use
  Company Number: DE-ABBOTT-13P-062-1033928-00

PATIENT
  Sex: Male
  Weight: 153 kg

DRUGS (1)
  1. HUMIRA PEN [Suspect]
     Indication: PSORIASIS
     Route: 050
     Dates: start: 20120807, end: 20121113

REACTIONS (4)
  - Feeling abnormal [Recovering/Resolving]
  - Depression [Recovering/Resolving]
  - Anxiety [Recovering/Resolving]
  - Aggression [Recovering/Resolving]
